FAERS Safety Report 15547099 (Version 1)
Quarter: 2018Q4

REPORT INFORMATION
  Report Type: Spontaneous
  Country: US (occurrence: US)
  Receive Date: 20181024
  Receipt Date: 20181024
  Transmission Date: 20190205
  Serious: Yes (Other)
  Sender: FDA-Public Use
  Company Number: None

PATIENT
  Age: 51 Year
  Sex: Female
  Weight: 61.65 kg

DRUGS (8)
  1. ASPIRIN COATED [Concomitant]
     Active Substance: ASPIRIN
  2. CGM [Concomitant]
  3. INSULIN/NOVOLOG [Concomitant]
  4. CERTAIN DRI ROLL-ON [Suspect]
     Active Substance: ALUMINUM CHLORIDE
     Indication: HYPERHIDROSIS
     Dosage: ?          OTHER STRENGTH:12 OZ;QUANTITY:1 OUNCE(S);?
     Route: 061
     Dates: start: 20170101, end: 20181002
  5. CERTAIN DRI ROLL-ON [Suspect]
     Active Substance: ALUMINUM CHLORIDE
     Indication: SKIN ODOUR ABNORMAL
     Dosage: ?          OTHER STRENGTH:12 OZ;QUANTITY:1 OUNCE(S);?
     Route: 061
     Dates: start: 20170101, end: 20181002
  6. MULTI VITAMINS [Concomitant]
     Active Substance: VITAMINS
  7. BUPROPION XL [Concomitant]
     Active Substance: BUPROPION
  8. VITAMIN C [Concomitant]
     Active Substance: ASCORBIC ACID

REACTIONS (6)
  - Pigmentation disorder [None]
  - Thermal burn [None]
  - Skin lesion [None]
  - Pruritus [None]
  - Rash [None]
  - Emotional distress [None]

NARRATIVE: CASE EVENT DATE: 20170913
